FAERS Safety Report 9680023 (Version 3)
Quarter: 2013Q4

REPORT INFORMATION
  Report Type: Spontaneous
  Country: US (occurrence: US)
  Receive Date: 20131110
  Receipt Date: 20131205
  Transmission Date: 20140711
  Serious: Yes (Hospitalization, Other)
  Sender: FDA-Public Use
  Company Number: US-AMGEN-USASP2013078310

PATIENT
  Age: 65 Year
  Sex: Male
  Weight: 133.33 kg

DRUGS (3)
  1. ENBREL [Suspect]
     Indication: RHEUMATOID ARTHRITIS
     Dosage: 50 MG, QWK
     Route: 058
     Dates: start: 20000301, end: 20131023
  2. MTX                                /00113801/ [Concomitant]
     Indication: RHEUMATOID ARTHRITIS
     Dosage: 25 UNK, QWK
     Route: 048
     Dates: start: 19990920, end: 201310
  3. PREDNISONE [Concomitant]
     Indication: RHEUMATOID ARTHRITIS
     Dosage: 7.5 MG, QD
     Route: 048
     Dates: start: 20020920

REACTIONS (10)
  - Pericarditis [Recovered/Resolved]
  - Fungal test positive [Unknown]
  - Chronic obstructive pulmonary disease [Unknown]
  - Lower respiratory tract infection fungal [Not Recovered/Not Resolved]
  - Pneumonia [Unknown]
  - Infection [Unknown]
  - Sinusitis [Unknown]
  - Fungal infection [Not Recovered/Not Resolved]
  - Zygomycosis [Not Recovered/Not Resolved]
  - Condition aggravated [Unknown]
